FAERS Safety Report 6171084-8 (Version None)
Quarter: 2009Q2

REPORT INFORMATION
  Report Type: 
  Country: None (occurrence: None)
  Receive Date: 20090429
  Receipt Date: 20090416
  Transmission Date: 20091009
  Serious: Yes (Other)
  Sender: FDA-Public Use
  Company Number: PHHY2009BR14448

PATIENT
  Sex: Male
  Weight: 82 kg

DRUGS (11)
  1. RASILEZ [Suspect]
     Indication: HYPERTENSION
     Dosage: 300 MG, QD
     Route: 048
  2. ATENOLOL [Concomitant]
     Indication: HYPERTENSION
     Dosage: 1 DF, BID
     Route: 048
  3. HYDERGINE [Concomitant]
     Indication: HYPERTENSION
     Dosage: 1 CAPSULE/THRICE A DAY
     Route: 048
  4. BETAHISTINE HYDROCHLORIDE [Concomitant]
     Indication: LABYRINTHITIS
     Dosage: 1 TABLET A DAY
     Route: 048
  5. DIMETICONE [Concomitant]
     Dosage: 1 DF, BID
     Route: 048
  6. ASPIRIN [Concomitant]
     Indication: INFARCTION
     Dosage: 1 TABLET A DAY
     Route: 048
  7. AMLODIPINE BESYLATE [Concomitant]
     Indication: HYPERTENSION
     Dosage: 1 TABLET A DAY
     Route: 048
  8. LOPID [Concomitant]
     Dosage: 1 TABLET A DAY
     Route: 048
     Dates: start: 20080901
  9. FLUIMUCIL [Concomitant]
     Indication: LUNG DISORDER
     Dosage: 1 DF, BID
     Route: 048
  10. OMNIC [Concomitant]
     Indication: PROSTATIC DISORDER
     Dosage: 1 TABLET A DAY
     Route: 048
  11. INSULIN [Concomitant]
     Indication: DIABETES MELLITUS
     Dosage: UNK
     Route: 058

REACTIONS (2)
  - BLOOD CREATININE INCREASED [None]
  - HYPERGLYCAEMIA [None]
